FAERS Safety Report 5401561-6 (Version None)
Quarter: 2007Q3

REPORT INFORMATION
  Report Type: 
  Country: None (occurrence: None)
  Receive Date: 20070712
  Receipt Date: 20070628
  Transmission Date: 20080115
  Serious: Yes (Other)
  Sender: FDA-Public Use
  Company Number: WSDF_00485

PATIENT
  Age: 29 Year
  Sex: Female

DRUGS (1)
  1. WINRHO SDF [Suspect]
     Indication: FOETAL-MATERNAL HAEMORRHAGE
     Dosage: 6000 MCG ONCE IV
     Route: 042
     Dates: start: 20050618, end: 20050618

REACTIONS (1)
  - ANAPHYLACTOID REACTION [None]
